FAERS Safety Report 9925059 (Version 2)
Quarter: 2014Q1

REPORT INFORMATION
  Report Type: Spontaneous
  Country: CH (occurrence: CH)
  Receive Date: 20140226
  Receipt Date: 20140226
  Transmission Date: 20141002
  Serious: Yes (Hospitalization)
  Sender: FDA-Public Use
  Company Number: CH-PFIZER INC-2014019454

PATIENT
  Age: 84 Year
  Sex: Male

DRUGS (1)
  1. ALDACTONE [Suspect]
     Indication: HYPERTENSION

REACTIONS (2)
  - Urosepsis [Unknown]
  - Gynaecomastia [Unknown]
